FAERS Safety Report 7197990-3 (Version None)
Quarter: 2010Q4

REPORT INFORMATION
  Report Type: 
  Country: None (occurrence: None)
  Receive Date: 20101203
  Receipt Date: 20101123
  Transmission Date: 20110411
  Serious: Yes (Hospitalization, Other)
  Sender: FDA-Public Use
  Company Number: 2009SP023526

PATIENT
  Age: 33 Year
  Sex: Female
  Weight: 88.905 kg

DRUGS (4)
  1. NUVARING [Suspect]
     Indication: CONTRACEPTION
     Dates: start: 20051201, end: 20070901
  2. PROVENTIL [Concomitant]
  3. SINGULAIR [Concomitant]
  4. ALLEGRA D 24 HOUR [Concomitant]

REACTIONS (25)
  - ARTHRALGIA [None]
  - ASTHMA [None]
  - CHEST DISCOMFORT [None]
  - CHEST PAIN [None]
  - COR PULMONALE [None]
  - DEEP VEIN THROMBOSIS [None]
  - DEHYDRATION [None]
  - DIASTOLIC HYPERTENSION [None]
  - DIZZINESS [None]
  - DYSPNOEA [None]
  - ELECTROCARDIOGRAM ABNORMAL [None]
  - ERYTHEMA NODOSUM [None]
  - IRON DEFICIENCY ANAEMIA [None]
  - JOINT SWELLING [None]
  - MICROCYTIC ANAEMIA [None]
  - MITRAL VALVE INCOMPETENCE [None]
  - MITRAL VALVE PROLAPSE [None]
  - MYALGIA [None]
  - PALPITATIONS [None]
  - PHLEBITIS [None]
  - PHLEBITIS SUPERFICIAL [None]
  - PRESYNCOPE [None]
  - PULMONARY EMBOLISM [None]
  - SYNCOPE [None]
  - TACHYCARDIA [None]
